FAERS Safety Report 6695436-2 (Version None)
Quarter: 2010Q2

REPORT INFORMATION
  Report Type: 
  Country: None (occurrence: None)
  Receive Date: 20100422
  Receipt Date: 20100422
  Transmission Date: 20101027
  Serious: No
  Sender: FDA-Public Use
  Company Number: None

PATIENT
  Age: 57 Year
  Sex: Female
  Weight: 65.7716 kg

DRUGS (3)
  1. ACTONEL [Suspect]
     Indication: OSTEOPENIA
     Dosage: ONE TABLET ONCE A MONTH
     Dates: start: 20100401
  2. IBUPROFEN [Concomitant]
  3. CALCIUM [Concomitant]

REACTIONS (3)
  - ACTIVITIES OF DAILY LIVING IMPAIRED [None]
  - IMPAIRED WORK ABILITY [None]
  - PAIN [None]
